FAERS Safety Report 11676870 (Version 1)
Quarter: 2015Q4

REPORT INFORMATION
  Report Type: Spontaneous
  Country: US (occurrence: US)
  Receive Date: 20151028
  Receipt Date: 20151028
  Transmission Date: 20160304
  Serious: No
  Sender: FDA-Public Use
  Company Number: US-B.I. PHARMACEUTICALS,INC./RIDGEFIELD-2015-BI-56981BP

PATIENT
  Age: 75 Year
  Sex: Female

DRUGS (1)
  1. ZANTAC MAXIMUM STRENGTH 150 COOL MINT [Suspect]
     Active Substance: RANITIDINE HYDROCHLORIDE
     Indication: GASTROOESOPHAGEAL REFLUX DISEASE
     Dosage: DOSE PER APPLICATION DAILY DOSE: 3 TO 4 TABLETS; STRENGTH: 150MG
     Route: 048
     Dates: start: 201508

REACTIONS (2)
  - Incorrect dose administered [Not Recovered/Not Resolved]
  - Off label use [Unknown]

NARRATIVE: CASE EVENT DATE: 201508
